FAERS Safety Report 9691875 (Version 2)
Quarter: 2013Q4

REPORT INFORMATION
  Report Type: Report from Study
  Country: BR (occurrence: BR)
  Receive Date: 20131117
  Receipt Date: 20131117
  Transmission Date: 20140711
  Serious: Yes (Other)
  Sender: FDA-Public Use
  Company Number: BR-US-EMD SERONO, INC.-7206890

PATIENT
  Age: 32 Year
  Sex: Female

DRUGS (9)
  1. REBIF [Suspect]
     Indication: MULTIPLE SCLEROSIS
     Route: 058
     Dates: start: 20100528
  2. GABAPENTINE [Concomitant]
     Indication: PRODUCT USED FOR UNKNOWN INDICATION
  3. ALPRAZOLAM [Concomitant]
     Indication: DEPRESSION
  4. ALPRAZOLAM [Concomitant]
     Indication: ANXIETY
  5. ALPRAZOLAM [Concomitant]
     Indication: INSOMNIA
  6. AMITRIPTYLINE [Concomitant]
     Indication: DEPRESSION
  7. AMITRIPTYLINE [Concomitant]
     Indication: INSOMNIA
  8. AMITRIPTYLINE [Concomitant]
     Indication: ANXIETY
  9. REMITEX [Concomitant]
     Indication: PRODUCT USED FOR UNKNOWN INDICATION

REACTIONS (1)
  - Epilepsy [Recovered/Resolved]
